FAERS Safety Report 9715342 (Version 1)
Quarter: 2013Q4

REPORT INFORMATION
  Report Type: Report from Study
  Country: US (occurrence: US)
  Receive Date: 20131127
  Receipt Date: 20131127
  Transmission Date: 20140711
  Serious: Yes (Death)
  Sender: FDA-Public Use
  Company Number: US-ROCHE-1310318

PATIENT
  Age: 70 Year
  Sex: 0

DRUGS (1)
  1. CELLCEPT [Suspect]
     Indication: RENAL TRANSPLANT
     Route: 065

REACTIONS (1)
  - Death [Fatal]
